FAERS Safety Report 15097348 (Version 1)
Quarter: 2018Q3

REPORT INFORMATION
  Report Type: Spontaneous
  Country: US (occurrence: US)
  Receive Date: 20180702
  Receipt Date: 20180702
  Transmission Date: 20181010
  Serious: No
  Sender: FDA-Public Use
  Company Number: US-MYLANLABS-2018M1044337

PATIENT
  Sex: Female
  Weight: 70 kg

DRUGS (1)
  1. THIORIDAZINE HYDROCHLORIDE TABLETS, USP [Suspect]
     Active Substance: THIORIDAZINE HYDROCHLORIDE
     Indication: SCHIZOPHRENIA
     Dosage: 100 MG, UNK
     Route: 048

REACTIONS (2)
  - Withdrawal syndrome [Recovering/Resolving]
  - Product availability issue [Unknown]
